FAERS Safety Report 9297725 (Version 1)
Quarter: 2013Q2

REPORT INFORMATION
  Report Type: Spontaneous
  Country: US (occurrence: None)
  Receive Date: 20130517
  Receipt Date: 20130517
  Transmission Date: 20140414
  Serious: Yes (Hospitalization)
  Sender: FDA-Public Use
  Company Number: None

PATIENT
  Age: 33 Year
  Sex: Female

DRUGS (1)
  1. PEG-ASPARAGINASE [Suspect]
     Indication: ACUTE LYMPHOCYTIC LEUKAEMIA
     Dates: start: 20120201, end: 20120201

REACTIONS (10)
  - Acute lymphocytic leukaemia [None]
  - Aspartate aminotransferase increased [None]
  - Dehydration [None]
  - Asthenia [None]
  - Alanine aminotransferase increased [None]
  - Blood bilirubin increased [None]
  - Hepatic steatosis [None]
  - Blood alkaline phosphatase increased [None]
  - Hepatotoxicity [None]
  - Pancreatitis [None]
